FAERS Safety Report 6279731-7 (Version None)
Quarter: 2009Q3

REPORT INFORMATION
  Report Type: 
  Country: None (occurrence: None)
  Receive Date: 20090721
  Receipt Date: 20090706
  Transmission Date: 20100115
  Serious: Yes (Other)
  Sender: FDA-Public Use
  Company Number: 2009-1502

PATIENT
  Age: 57 Year
  Sex: Female

DRUGS (1)
  1. SOMATULINE AUTOSOLUTION  (LANREOTIDE ACETATE) [Suspect]
     Indication: CARCINOID TUMOUR
     Dosage: 90 MG, SUBCUTANEOUS
     Route: 058
     Dates: start: 20080522, end: 20081009

REACTIONS (1)
  - INJECTION SITE NODULE [None]
